FAERS Safety Report 9882699 (Version 2)
Quarter: 2014Q2

REPORT INFORMATION
  Report Type: Report from Study
  Country: CL (occurrence: CL)
  Receive Date: 20140207
  Receipt Date: 20140515
  Transmission Date: 20141212
  Serious: Yes (Life-Threatening, Hospitalization, Other)
  Sender: FDA-Public Use
  Company Number: CL-GILEAD-2014-0093760

PATIENT
  Age: 46 Year
  Sex: Male
  Weight: 69.5 kg

DRUGS (5)
  1. EMTRICITABINE/TENOFOVIR DISOPROXIL FUMARATE [Suspect]
     Indication: HIV INFECTION
     Dosage: 20 DF, UNK
     Route: 048
     Dates: start: 20140114, end: 20140114
  2. EMTRICITABINE/TENOFOVIR DISOPROXIL FUMARATE [Suspect]
     Dosage: 1 DF, QD
     Route: 048
     Dates: start: 20130430
  3. EFAVIRENZ [Suspect]
     Indication: HIV INFECTION
     Dosage: 20 DF, UNK
     Route: 048
     Dates: start: 20140114, end: 20140114
  4. EFAVIRENZ [Suspect]
     Dosage: 600 MG, QD
     Route: 048
     Dates: start: 20130430
  5. IBUPROFEN [Concomitant]
     Indication: PRODUCT USED FOR UNKNOWN INDICATION
     Dosage: 600 MG, BID
     Route: 065

REACTIONS (2)
  - Suicide attempt [Recovered/Resolved]
  - Intentional overdose [Recovered/Resolved]
